FAERS Safety Report 9210648 (Version 2)
Quarter: 2013Q2

REPORT INFORMATION
  Report Type: Spontaneous
  Country: US (occurrence: US)
  Receive Date: 20130404
  Receipt Date: 20130502
  Transmission Date: 20140414
  Serious: Yes (Hospitalization, Other)
  Sender: FDA-Public Use
  Company Number: US-UCBSA-081885

PATIENT
  Age: 46 Year
  Sex: Female
  Weight: 64.8 kg

DRUGS (2)
  1. CIMZIA [Suspect]
     Indication: CROHN^S DISEASE
     Route: 058
     Dates: start: 20121123, end: 20130215
  2. LISINOPRIL [Concomitant]
     Indication: HYPERTENSION
     Route: 048
     Dates: start: 201212

REACTIONS (2)
  - Ileocolectomy [Recovering/Resolving]
  - Abdominal abscess [Recovered/Resolved]
